FAERS Safety Report 26130586 (Version 1)
Quarter: 2025Q4

REPORT INFORMATION
  Report Type: Spontaneous
  Country: US (occurrence: None)
  Receive Date: 20251205
  Receipt Date: 20251205
  Transmission Date: 20260117
  Serious: No
  Sender: FDA-CTU
  Company Number: None

PATIENT
  Sex: Female

DRUGS (9)
  1. LENALIDOMIDE [Suspect]
     Active Substance: LENALIDOMIDE
     Indication: Plasma cell myeloma
     Dosage: TAKE 1 CAPSULE (25 MG) BY MOUTH DAILY ON DAYS 1 THROUGH 21, THEN OFF FOR 7 DAYS, OF EACH  28-DAY CYCLE.
     Route: 048
     Dates: start: 20250422
  2. VELCADE [Suspect]
     Active Substance: BORTEZOMIB
  3. ACYCLOVIR TAB 800MG [Concomitant]
  4. BACTRIM OS TAB 800-160 [Concomitant]
  5. DEXAMETHASONE [Concomitant]
     Active Substance: DEXAMETHASONE
  6. DIPHENHYDRAM CAP 25MG [Concomitant]
  7. ONDANSETRON [Concomitant]
     Active Substance: ONDANSETRON
  8. PROCHLORPER TAB 5MG [Concomitant]
  9. TYLENOL TAB 500MG [Concomitant]

REACTIONS (3)
  - Hypoaesthesia [None]
  - Paraesthesia [None]
  - Paraesthesia [None]
